FAERS Safety Report 10920559 (Version 2)
Quarter: 2015Q1

REPORT INFORMATION
  Report Type: Report from Study
  Country: BR (occurrence: BR)
  Receive Date: 20150317
  Receipt Date: 20150331
  Transmission Date: 20150721
  Serious: Yes (Other)
  Sender: FDA-Public Use
  Company Number: PHHY2015BR030708

PATIENT
  Age: 74 Year
  Sex: Male
  Weight: 62 kg

DRUGS (3)
  1. DIOVAN [Suspect]
     Active Substance: VALSARTAN
     Indication: INTRAOCULAR PRESSURE INCREASED
     Dosage: 1 DF, QD (IN THE MORNING)
     Route: 048
  2. VALSARTAN. [Suspect]
     Active Substance: VALSARTAN
     Indication: INTRAOCULAR PRESSURE INCREASED
     Dosage: 1 DF (TABLET), QD (IN THE MORNING)
     Route: 048
  3. COMBIGAN [Suspect]
     Active Substance: BRIMONIDINE TARTRATE\TIMOLOL MALEATE
     Indication: INTRAOCULAR PRESSURE INCREASED
     Dosage: 1 DRP (IN THE EYES), QD (AT NIGHT)
     Route: 047
     Dates: end: 2013

REACTIONS (3)
  - Glaucoma [Not Recovered/Not Resolved]
  - Product use issue [Unknown]
  - Cataract [Recovered/Resolved]

NARRATIVE: CASE EVENT DATE: 201302
